FAERS Safety Report 4967745-6 (Version None)
Quarter: 2006Q2

REPORT INFORMATION
  Report Type: 
  Country: None (occurrence: None)
  Receive Date: 20060410
  Receipt Date: 20060102
  Transmission Date: 20061013
  Serious: Yes (Hospitalization, Other)
  Sender: FDA-Public Use
  Company Number: PHEH2006US00463

PATIENT
  Age: 35 Year
  Sex: Female
  Weight: 68.027 kg

DRUGS (1)
  1. FEMARA [Suspect]
     Indication: OVULATION INDUCTION
     Dosage: 2.5MG, QD ON DAY 3-7 OF CYCLE
     Route: 048

REACTIONS (7)
  - AMNIOTIC FLUID VOLUME DECREASED [None]
  - CAESAREAN SECTION [None]
  - COMPLICATION OF PREGNANCY [None]
  - DRUG EXPOSURE BEFORE PREGNANCY [None]
  - FOETAL HEART RATE ABNORMAL [None]
  - NORMAL NEWBORN [None]
  - TWIN PREGNANCY [None]
